FAERS Safety Report 8534271-7 (Version None)
Quarter: 2012Q3

REPORT INFORMATION
  Report Type: 
  Country: None (occurrence: None)
  Receive Date: 20120711
  Receipt Date: 20120204
  Transmission Date: 20120928
  Serious: No
  Sender: FDA-Public Use
  Company Number: 2012-01609

PATIENT
  Age: 59 Year
  Sex: Male
  Weight: 92 kg

DRUGS (2)
  1. IMOGAM RABIES-HT [Suspect]
     Indication: IMMUNISATION
     Dosage: TOTAL DOSAGE INFILTRATED IN WOUND AND REMAINDER GIVEN INTRAMUSCULAR, (1858 I.U.), I.M.
     Route: 030
     Dates: start: 20120130, end: 20120130
  2. IMOVAX RABIES I.D. [Suspect]
     Indication: IMMUNISATION
     Dosage: I.M.
     Route: 030
     Dates: start: 20120130, end: 20120130

REACTIONS (3)
  - PALLOR [None]
  - SERUM SICKNESS [None]
  - ARTHRALGIA [None]
